FAERS Safety Report 25530656 (Version 1)
Quarter: 2025Q3

REPORT INFORMATION
  Report Type: Spontaneous
  Country: KR (occurrence: KR)
  Receive Date: 20250708
  Receipt Date: 20250708
  Transmission Date: 20251021
  Serious: Yes (Other)
  Sender: PFIZER
  Company Number: KR-PFIZER INC-202500132827

PATIENT
  Age: 2 Year
  Sex: Female

DRUGS (4)
  1. VINCRISTINE SULFATE [Suspect]
     Active Substance: VINCRISTINE SULFATE
     Indication: Glioblastoma multiforme
     Dosage: 0.4 MG, 1X/DAY
     Dates: start: 20241112
  2. CYCLOPHOSPHAMIDE [Suspect]
     Active Substance: CYCLOPHOSPHAMIDE
     Indication: Glioblastoma multiforme
     Dosage: 420 MG, 1X/DAY
     Dates: start: 20241113
  3. CISPLATIN [Suspect]
     Active Substance: CISPLATIN
     Indication: Glioblastoma multiforme
     Dosage: 24 MG, 1X/DAY
     Dates: start: 20241112
  4. ETOPOSIDE [Suspect]
     Active Substance: ETOPOSIDE
     Indication: Glioblastoma multiforme
     Dosage: 20 MG, 1X/DAY
     Dates: start: 20241112

REACTIONS (4)
  - Febrile neutropenia [Recovering/Resolving]
  - Thrombocytopenia [Recovering/Resolving]
  - Leukopenia [Recovering/Resolving]
  - Anaemia [Recovering/Resolving]

NARRATIVE: CASE EVENT DATE: 20241120
